FAERS Safety Report 15858685 (Version 1)
Quarter: 2018Q4

REPORT INFORMATION
  Report Type: Spontaneous
  Country: US (occurrence: US)
  Receive Date: 20181228
  Receipt Date: 20181228
  Transmission Date: 20190205
  Serious: Yes (Other)
  Sender: FDA-Public Use
  Company Number: None

PATIENT
  Age: 71 Year
  Sex: Female
  Weight: 72.12 kg

DRUGS (15)
  1. TYLENOL [Concomitant]
     Active Substance: ACETAMINOPHEN
  2. AMILODIPINE [Concomitant]
  3. TYLENOL [Concomitant]
     Active Substance: ACETAMINOPHEN
  4. ROLLOTOR WALKER [Concomitant]
  5. LISINOPRIL HCTZ [Concomitant]
     Active Substance: HYDROCHLOROTHIAZIDE\LISINOPRIL
  6. DOXEPIN [Concomitant]
     Active Substance: DOXEPIN
  7. FLEXERIL [Concomitant]
     Active Substance: CYCLOBENZAPRINE HYDROCHLORIDE
  8. POWER ADE SPORTS DK WOTH VIT B3, B6 + B12 [Concomitant]
  9. OXYCODONE WITH TYLENOL [Concomitant]
  10. PACEMAKER [Concomitant]
  11. XARELTO [Concomitant]
     Active Substance: RIVAROXABAN
  12. TRAMADOL. [Concomitant]
     Active Substance: TRAMADOL
  13. LYRICA [Suspect]
     Active Substance: PREGABALIN
     Indication: PAIN
     Dosage: ?          QUANTITY:6 DF DOSAGE FORM;?
     Route: 048
     Dates: start: 20181210, end: 20181211
  14. CLINARIL [Concomitant]
  15. CITALOPRAM [Concomitant]
     Active Substance: CITALOPRAM HYDROBROMIDE

REACTIONS (6)
  - Lip swelling [None]
  - Pain in extremity [None]
  - Dyspnoea [None]
  - Mouth swelling [None]
  - Skin discolouration [None]
  - Swollen tongue [None]

NARRATIVE: CASE EVENT DATE: 20181210
